FAERS Safety Report 15177555 (Version 2)
Quarter: 2018Q4

REPORT INFORMATION
  Report Type: Spontaneous
  Country: US (occurrence: US)
  Receive Date: 20180720
  Receipt Date: 20180814
  Transmission Date: 20190204
  Serious: No
  Sender: FDA-Public Use
  Company Number: US-TAIHO ONCOLOGY  INC-EU-2018-01017

PATIENT
  Age: 52 Year
  Sex: Female
  Weight: 83.08 kg

DRUGS (2)
  1. LONSURF [Suspect]
     Active Substance: TIPIRACIL HYDROCHLORIDE\TRIFLURIDINE
     Indication: COLON CANCER
     Dosage: CURRENT CYCLE 1 (20 MG BID DOSE TAKEN)
     Route: 048
     Dates: start: 20180711
  2. LONSURF [Suspect]
     Active Substance: TIPIRACIL HYDROCHLORIDE\TRIFLURIDINE
     Dosage: CYCLE 1 (DOSE PRESCRIBED)
     Route: 048
     Dates: start: 201807

REACTIONS (3)
  - Fatigue [Not Recovered/Not Resolved]
  - Underdose [Unknown]
  - Product label issue [Unknown]

NARRATIVE: CASE EVENT DATE: 201807
